FAERS Safety Report 8946231 (Version 3)
Quarter: 2013Q4

REPORT INFORMATION
  Report Type: Report from Study
  Country: JP (occurrence: JP)
  Receive Date: 20121204
  Receipt Date: 20131003
  Transmission Date: 20140711
  Serious: Yes (Life-Threatening, Hospitalization)
  Sender: FDA-Public Use
  Company Number: JP-009507513-1212JPN000076

PATIENT
  Age: 48 Year
  Sex: Female
  Weight: 44 kg

DRUGS (11)
  1. REBETOL [Suspect]
     Indication: CHRONIC HEPATITIS C
     Dosage: 200 MG, IN MORNING, 400 MG IN EVENING
     Route: 048
     Dates: start: 20110607, end: 20110704
  2. REBETOL [Suspect]
     Dosage: 200 MG, BID
     Route: 048
     Dates: start: 20110705, end: 20111115
  3. FERON [Suspect]
     Indication: CHRONIC HEPATITIS C
     Dosage: 6 MILLION IU, QD
     Route: 041
     Dates: start: 20110607, end: 20111115
  4. CONIEL [Concomitant]
     Indication: PRINZMETAL ANGINA
     Dosage: TOTAL DAILY DOSE:8 MG, QD, DIVIDED DOSE FREQUENCY
     Route: 048
     Dates: start: 20110429, end: 20111123
  5. FRANDOL [Concomitant]
     Indication: PRINZMETAL ANGINA
     Dosage: ONE PIECE A DAY(40MG);FORMULATION: TAP
     Route: 061
     Dates: start: 20110429
  6. BAYASPIRIN [Concomitant]
     Indication: PROPHYLAXIS
     Dosage: DIVIDED DOSE FREQUENCY UNKNOWN
     Route: 048
     Dates: start: 20111124
  7. PANALDINE [Concomitant]
     Indication: PROPHYLAXIS
     Dosage: 200 MG, QD, DIVIDED DOSE FREQUENCY UNKNOWN
     Route: 048
     Dates: start: 20111124
  8. TANATRIL [Concomitant]
     Indication: HYPERTENSION
     Dosage: 2.5 MG, QD
     Route: 048
     Dates: start: 20111124
  9. SIGMART [Concomitant]
     Indication: PROPHYLAXIS
     Dosage: 15 MG, QD
     Route: 048
     Dates: start: 20111124
  10. LIPITOR [Concomitant]
     Indication: HYPERLIPIDAEMIA
     Dosage: 10 MG, QD, DIVIDED DOSE FREQUENCY UNKNOWN
     Route: 048
     Dates: start: 20111124, end: 20130221
  11. PARIET [Concomitant]
     Indication: PROPHYLAXIS
     Dosage: 10 MG, QD;DIVIDED DOSE FREQUENCY UNKNOWN
     Route: 048
     Dates: start: 20111124

REACTIONS (5)
  - Acute myocardial infarction [Recovering/Resolving]
  - Pyrexia [Recovering/Resolving]
  - Anaemia [Recovered/Resolved]
  - Hypertension [Not Recovered/Not Resolved]
  - Hyperlipidaemia [Recovered/Resolved]
